FAERS Safety Report 22307877 (Version 1)
Quarter: 2023Q2

REPORT INFORMATION
  Report Type: Spontaneous
  Country: US (occurrence: None)
  Receive Date: 20230511
  Receipt Date: 20230511
  Transmission Date: 20230722
  Serious: No
  Sender: FDA-Public Use
  Company Number: US-ROCHE-3163126

PATIENT
  Age: 33 Year
  Sex: Female
  Weight: 139.83 kg

DRUGS (1)
  1. OCREVUS [Suspect]
     Active Substance: OCRELIZUMAB
     Indication: Multiple sclerosis
     Dosage: 1ST TWO DOSES GIVEN 2 WEEKS APART THEN GIVEN EVERY 6 MONTHS ;ONGOING: UNKNOWN
     Route: 042
     Dates: start: 20220815

REACTIONS (4)
  - Erythema [Recovered/Resolved]
  - Blood pressure increased [Recovered/Resolved]
  - Throat irritation [Recovered/Resolved]
  - Rash [Recovered/Resolved]

NARRATIVE: CASE EVENT DATE: 20220815
